FAERS Safety Report 16993641 (Version 4)
Quarter: 2019Q4

REPORT INFORMATION
  Report Type: Spontaneous
  Country: JP (occurrence: JP)
  Receive Date: 20191105
  Receipt Date: 20191206
  Transmission Date: 20200122
  Serious: Yes (Death, Other)
  Sender: FDA-Public Use
  Company Number: JP-OTSUKA-2019_037400

PATIENT
  Age: 70 Year
  Sex: Male
  Weight: 55.4 kg

DRUGS (12)
  1. ALDACTONE [Suspect]
     Active Substance: SPIRONOLACTONE
     Indication: PRODUCT USED FOR UNKNOWN INDICATION
     Dosage: 25 MG, QD
     Route: 048
     Dates: start: 20191023, end: 20191027
  2. ALPRAZOLAM. [Concomitant]
     Active Substance: ALPRAZOLAM
     Indication: PRODUCT USED FOR UNKNOWN INDICATION
     Dosage: UNK, BID (AFTER BREAKFAST, BEFORE SLEEP)
     Route: 048
     Dates: start: 20191024
  3. SAMSCA [Suspect]
     Active Substance: TOLVAPTAN
     Indication: CARDIAC FAILURE CONGESTIVE
     Dosage: 7.5 MG, QD
     Route: 048
     Dates: start: 20191023, end: 20191027
  4. ZOLPIDEM TARTRATE. [Concomitant]
     Active Substance: ZOLPIDEM TARTRATE
     Indication: PRODUCT USED FOR UNKNOWN INDICATION
     Dosage: UNK, QD (BEFORE SLEEP)
     Route: 048
     Dates: start: 20191024
  5. MAGNESIUM OXIDE. [Concomitant]
     Active Substance: MAGNESIUM OXIDE
     Indication: PRODUCT USED FOR UNKNOWN INDICATION
     Dosage: UNK, BID (AFTER BREAKFAST, BEFORE SLEEP)
     Route: 048
     Dates: start: 20191024
  6. EFFEXOR [Concomitant]
     Active Substance: VENLAFAXINE HYDROCHLORIDE
     Indication: PRODUCT USED FOR UNKNOWN INDICATION
     Dosage: UNK, BID (AFTER BREAKFAST, BEFORE SLEEP)
     Route: 048
     Dates: start: 20191024
  7. BUFFERIN COMBINATION [Concomitant]
     Active Substance: ASPIRIN\DIHYDROXYALUMINUM AMINOACETATE ANHYDROUS\MAGNESIUM CARBONATE
     Indication: PRODUCT USED FOR UNKNOWN INDICATION
     Dosage: UNK, QD (AFTER BREAKFAST)
     Route: 048
     Dates: start: 20191024
  8. SODIUM VALPROATE [Concomitant]
     Active Substance: VALPROATE SODIUM
     Indication: PRODUCT USED FOR UNKNOWN INDICATION
     Dosage: UNK, BID (AFTER BREAKFAST, BEFORE SLEEP)
     Route: 048
     Dates: start: 20191024
  9. ROZEREM [Concomitant]
     Active Substance: RAMELTEON
     Indication: PRODUCT USED FOR UNKNOWN INDICATION
     Dosage: UNK, QD (BEFORE SLEEP)
     Route: 048
     Dates: start: 20191024
  10. LASIX [Concomitant]
     Active Substance: FUROSEMIDE
     Indication: PRODUCT USED FOR UNKNOWN INDICATION
     Dosage: 20 MG, QD
     Route: 042
     Dates: start: 20191023, end: 20191027
  11. DOBUPUM [Concomitant]
     Active Substance: DOBUTAMINE HYDROCHLORIDE
     Indication: PRODUCT USED FOR UNKNOWN INDICATION
     Dosage: 2R/50KG/DAY
     Route: 042
     Dates: start: 20191023
  12. JANUVIA [Concomitant]
     Active Substance: SITAGLIPTIN PHOSPHATE
     Indication: PRODUCT USED FOR UNKNOWN INDICATION
     Dosage: UNK, QD (AFTER BREAKFAST)
     Route: 048
     Dates: start: 20191024

REACTIONS (2)
  - Multiple organ dysfunction syndrome [Fatal]
  - Hepatitis fulminant [Fatal]

NARRATIVE: CASE EVENT DATE: 20191028
